FAERS Safety Report 24260255 (Version 3)
Quarter: 2024Q4

REPORT INFORMATION
  Report Type: Spontaneous
  Country: IN (occurrence: IN)
  Receive Date: 20240828
  Receipt Date: 20241007
  Transmission Date: 20250115
  Serious: Yes (Death, Other)
  Sender: PFIZER
  Company Number: IN-PFIZER INC-PV202400110304

PATIENT
  Age: 46 Year
  Sex: Female

DRUGS (8)
  1. CRIZOTINIB [Suspect]
     Active Substance: CRIZOTINIB
     Indication: Non-small cell lung cancer
     Dosage: 250 MG, 2X/DAY
     Route: 048
     Dates: start: 20240429, end: 20240921
  2. CRIZOTINIB [Suspect]
     Active Substance: CRIZOTINIB
     Dosage: 250 MG, 2X/DAY (FOR 2 MONTHS)
     Route: 048
     Dates: start: 202405
  3. ARORAB PLUS [Concomitant]
     Dosage: 40 MG, 1X/DAY (FOR 2 MONTHS)
  4. VOMIKIND MD [Concomitant]
     Dosage: 4 MG, 3X/DAY (FOR 2 MONTHS)
  5. MINERAL OIL [Concomitant]
     Active Substance: MINERAL OIL
     Indication: Constipation
     Dosage: 10 ML (AT BEDTIME IN CASE OF CONSTIPATION) (FOR 2 MONTHS)
  6. ULTRACET [Concomitant]
     Active Substance: ACETAMINOPHEN\TRAMADOL HYDROCHLORIDE
     Indication: Pain
     Dosage: UNK UNK, AS NEEDED (FOR 2 MONTHS)
  7. ACECLOFENAC\ACETAMINOPHEN [Concomitant]
     Active Substance: ACECLOFENAC\ACETAMINOPHEN
     Dosage: UNK UNK, 2X/DAY (X 7 DAYS) (FOR 2 MONTHS)
  8. VOLINI [Concomitant]
     Dosage: UNK (FOR LOCAL APPLICATION) (FOR 2 MONTHS)

REACTIONS (4)
  - Death [Fatal]
  - Anal fistula [Unknown]
  - Pustule [Unknown]
  - Asthenia [Recovered/Resolved]
